FAERS Safety Report 10254099 (Version 1)
Quarter: 2014Q2

REPORT INFORMATION
  Report Type: Spontaneous
  Country: PL (occurrence: PL)
  Receive Date: 20140623
  Receipt Date: 20140623
  Transmission Date: 20141212
  Serious: Yes (Other)
  Sender: FDA-Public Use
  Company Number: PL-ROCHE-1420662

PATIENT
  Age: 61 Year
  Sex: Female
  Weight: 57 kg

DRUGS (4)
  1. ROACTEMRA [Suspect]
     Indication: RHEUMATOID ARTHRITIS
     Route: 042
     Dates: start: 200911, end: 20140512
  2. METYPRED [Concomitant]
     Indication: RHEUMATOID ARTHRITIS
     Route: 048
     Dates: start: 200901
  3. BISOCARD [Concomitant]
     Indication: HYPERTENSION
     Route: 048
     Dates: start: 201308
  4. TULIP [Concomitant]
     Indication: HYPERCHOLESTEROLAEMIA
     Route: 048
     Dates: start: 201308

REACTIONS (1)
  - Lung disorder [Not Recovered/Not Resolved]
